FAERS Safety Report 10412852 (Version 1)
Quarter: 2014Q2

REPORT INFORMATION
  Report Type: Spontaneous
  Country: US (occurrence: None)
  Receive Date: 20140604
  Receipt Date: 20140604
  Transmission Date: 20141212
  Serious: Yes (Hospitalization)
  Sender: FDA-Public Use
  Company Number: 20120426CINRY2926

PATIENT
  Age: 35 Year
  Sex: Female
  Weight: 68.49 kg

DRUGS (13)
  1. CINRYZE [Suspect]
     Indication: HEREDITARY ANGIOEDEMA
     Route: 042
  2. CINRYZE [Suspect]
     Indication: PROPHYLAXIS
     Route: 042
  3. LIPITOR (ATORVASTATIN CALCIUM) [Concomitant]
  4. ALVESCO (CICLESONIDE) [Concomitant]
  5. AMBIEN (ZOLPIDEM TARTRATE) [Concomitant]
  6. CLONAZEPAM (CLONAZEPAM) [Concomitant]
  7. COUMADIN (WARFARIN SODIUM) [Concomitant]
  8. FIRAZYR (ICATIBANT ACETATE) [Concomitant]
  9. FLUOXETINE (FLUOXETINE) [Concomitant]
  10. LORAZEPAM (LORAZEPAM) [Concomitant]
  11. PERCOCET (OXYCOCET) [Concomitant]
  12. VITAMIN B-12 (CYANOCOBALAMIN) [Concomitant]
  13. XOPENEX (LEVOSALBUTAMOL HYDROCHLORIDE) [Concomitant]

REACTIONS (4)
  - Drug dose omission [None]
  - Inappropriate schedule of drug administration [None]
  - Inappropriate schedule of drug administration [None]
  - Hereditary angioedema [None]
